FAERS Safety Report 4715960-9 (Version None)
Quarter: 2005Q3

REPORT INFORMATION
  Report Type: 
  Country: None (occurrence: None)
  Receive Date: 20050718
  Receipt Date: 20050714
  Transmission Date: 20060218
  Serious: Yes (Life-Threatening)
  Sender: FDA-Public Use
  Company Number: ZA-BOEHRINGER INGELHEIM PHARMACEUTICALS, INC.-2005-DE-02769ZA

PATIENT
  Sex: Female
  Weight: 70 kg

DRUGS (1)
  1. MOBIC [Suspect]
     Indication: INTERVERTEBRAL DISC PROTRUSION
     Route: 030
     Dates: start: 20050706, end: 20050706

REACTIONS (6)
  - DRUG HYPERSENSITIVITY [None]
  - DYSPNOEA [None]
  - FLUSHING [None]
  - INJECTION SITE URTICARIA [None]
  - PRURITUS [None]
  - URTICARIA [None]
